FAERS Safety Report 9334718 (Version 2)
Quarter: 2013Q4

REPORT INFORMATION
  Report Type: Spontaneous
  Country: US (occurrence: US)
  Receive Date: 20130606
  Receipt Date: 20131008
  Transmission Date: 20140711
  Serious: No
  Sender: FDA-Public Use
  Company Number: US-AMGEN-USASP2013023595

PATIENT
  Age: 87 Year
  Sex: Female

DRUGS (9)
  1. PROLIA [Suspect]
     Indication: OSTEOPOROSIS
     Dosage: 60 MG, UNK
     Dates: start: 20130212
  2. PROLIA [Suspect]
  3. VERAPAMIL [Concomitant]
  4. ONE A DAY                          /02262701/ [Concomitant]
  5. CALCIUM [Concomitant]
     Dosage: 1000 MG, QD
  6. VITAMIN D                          /00107901/ [Concomitant]
     Dosage: 2000 UNK, QD
  7. BENADRYL                           /00000402/ [Concomitant]
     Dosage: UNK UNK, QD
  8. XANAX [Concomitant]
     Dosage: 0.25 MG, QID
  9. SOTALOL [Concomitant]

REACTIONS (5)
  - Skin discolouration [Not Recovered/Not Resolved]
  - Dysphonia [Not Recovered/Not Resolved]
  - Aphonia [Not Recovered/Not Resolved]
  - Cystitis [Not Recovered/Not Resolved]
  - Constipation [Not Recovered/Not Resolved]
